FAERS Safety Report 6616543-6 (Version None)
Quarter: 2010Q1

REPORT INFORMATION
  Report Type: 
  Country: None (occurrence: None)
  Receive Date: 20100305
  Receipt Date: 20100222
  Transmission Date: 20100710
  Serious: Yes (Other)
  Sender: FDA-Public Use
  Company Number: US-PFIZER INC-2010023661

PATIENT
  Sex: Female
  Weight: 58 kg

DRUGS (2)
  1. CHANTIX [Suspect]
     Indication: SMOKING CESSATION THERAPY
     Dosage: 0.5 MG, 1X/DAY
     Route: 048
     Dates: start: 20100123, end: 20100101
  2. PERCOCET [Concomitant]
     Indication: BACK PAIN
     Dosage: UNK MG, UNK
     Route: 048

REACTIONS (6)
  - CHEST DISCOMFORT [None]
  - CONFUSIONAL STATE [None]
  - DEPRESSION [None]
  - MOOD SWINGS [None]
  - PANIC ATTACK [None]
  - PARANOIA [None]
